FAERS Safety Report 9367055 (Version 1)
Quarter: 2013Q2

REPORT INFORMATION
  Report Type: Spontaneous
  Country: GB (occurrence: GB)
  Receive Date: 20130625
  Receipt Date: 20130625
  Transmission Date: 20140414
  Serious: Yes (Life-Threatening)
  Sender: FDA-Public Use
  Company Number: GB-BAXTER-2013BAX022650

PATIENT
  Age: 8 Year
  Sex: Female

DRUGS (5)
  1. CYCLOPHOSPHAMIDE INJECTION 200MG [Suspect]
     Indication: THALASSAEMIA BETA
     Route: 065
  2. ALEMTUZUMAB [Suspect]
     Indication: THALASSAEMIA BETA
     Route: 065
  3. BUSULFAN [Suspect]
     Indication: THALASSAEMIA BETA
     Route: 065
  4. CICLOSPORIN [Suspect]
     Indication: PROPHYLAXIS AGAINST GRAFT VERSUS HOST DISEASE
     Route: 065
  5. METHOTREXATE [Suspect]
     Indication: PROPHYLAXIS AGAINST GRAFT VERSUS HOST DISEASE
     Route: 065

REACTIONS (9)
  - Cytomegalovirus infection [Unknown]
  - Idiopathic pneumonia syndrome [Unknown]
  - Mucosal inflammation [Unknown]
  - Pneumonia adenoviral [Unknown]
  - Pulmonary haemorrhage [Unknown]
  - Pulmonary hypertension [Unknown]
  - Pulmonary veno-occlusive disease [Unknown]
  - Respiratory failure [Unknown]
  - Sepsis [Unknown]
